FAERS Safety Report 12781039 (Version 2)
Quarter: 2016Q4

REPORT INFORMATION
  Report Type: Spontaneous
  Country: US (occurrence: US)
  Receive Date: 20160926
  Receipt Date: 20161025
  Transmission Date: 20170207
  Serious: Yes (Other)
  Sender: FDA-Public Use
  Company Number: US-PRAGMA PHARMACEUTICALS, LLC-2016PRG00870

PATIENT
  Age: 71 Year
  Sex: Female
  Weight: 58.96 kg

DRUGS (2)
  1. KEFLEX [Suspect]
     Active Substance: CEPHALEXIN
     Indication: URINARY TRACT INFECTION
     Dosage: 500 MG, 4X/DAY
     Route: 048
     Dates: start: 20160824
  2. CEFTRIAXONE. [Suspect]
     Active Substance: CEFTRIAXONE
     Dosage: 1 G, ONCE
     Dates: start: 20160824

REACTIONS (4)
  - Loss of consciousness [Recovered/Resolved]
  - Cellulitis [Recovering/Resolving]
  - Drug ineffective [Recovering/Resolving]
  - Presyncope [Recovered/Resolved]

NARRATIVE: CASE EVENT DATE: 20160825
